FAERS Safety Report 4845027-0 (Version None)
Quarter: 2005Q4

REPORT INFORMATION
  Report Type: 
  Country: None (occurrence: None)
  Receive Date: 20051205
  Receipt Date: 20051130
  Transmission Date: 20060501
  Serious: Yes (Death, Hospitalization)
  Sender: FDA-Public Use
  Company Number: US-MERCK-0512USA00080

PATIENT
  Age: 44 Year
  Sex: Male
  Weight: 103 kg

DRUGS (6)
  1. VIOXX [Suspect]
     Indication: PAIN
     Route: 048
     Dates: start: 20040322, end: 20040408
  2. NAPROXEN [Concomitant]
     Indication: PAIN
     Route: 065
  3. IBUPROFEN [Concomitant]
     Route: 065
  4. PAXIL [Concomitant]
     Route: 048
  5. CRESTOR [Concomitant]
     Route: 048
  6. MONOPRIL [Concomitant]
     Route: 065

REACTIONS (5)
  - ACCIDENT [None]
  - COMA [None]
  - DEATH [None]
  - GUN SHOT WOUND [None]
  - NEPHROLITHIASIS [None]
